FAERS Safety Report 13008210 (Version 1)
Quarter: 2016Q4

REPORT INFORMATION
  Report Type: Spontaneous
  Country: US (occurrence: US)
  Receive Date: 20161208
  Receipt Date: 20161208
  Transmission Date: 20170207
  Serious: Yes (Other)
  Sender: FDA-Public Use
  Company Number: US-TEVA-627058USA

PATIENT
  Sex: Male
  Weight: 88.53 kg

DRUGS (1)
  1. AMIODARONE [Suspect]
     Active Substance: AMIODARONE
     Indication: ATRIAL FIBRILLATION
     Dates: start: 20131026, end: 201401

REACTIONS (7)
  - Hordeolum [Recovered/Resolved]
  - Visual acuity reduced [Not Recovered/Not Resolved]
  - Blindness [Not Recovered/Not Resolved]
  - Lacrimation increased [Unknown]
  - Visual acuity reduced [Not Recovered/Not Resolved]
  - Visual field defect [Unknown]
  - Blindness unilateral [Not Recovered/Not Resolved]

NARRATIVE: CASE EVENT DATE: 2015
